FAERS Safety Report 9631330 (Version 2)
Quarter: 2013Q4

REPORT INFORMATION
  Report Type: Spontaneous
  Country: PL (occurrence: PL)
  Receive Date: 20131018
  Receipt Date: 20131206
  Transmission Date: 20140711
  Serious: Yes (Death, Other)
  Sender: FDA-Public Use
  Company Number: PL-ROCHE-1286306

PATIENT
  Age: 24 Year
  Sex: Male
  Weight: 82 kg

DRUGS (6)
  1. MABTHERA [Suspect]
     Indication: DIFFUSE LARGE B-CELL LYMPHOMA
     Route: 042
     Dates: start: 20130130, end: 20130419
  2. CYCLOPHOSPHAMIDE [Suspect]
     Indication: DIFFUSE LARGE B-CELL LYMPHOMA
     Route: 065
     Dates: start: 20130130, end: 20130419
  3. VINCRISTINE [Suspect]
     Indication: DIFFUSE LARGE B-CELL LYMPHOMA
     Route: 065
     Dates: start: 20130130, end: 20130419
  4. DOXORUBICIN [Suspect]
     Indication: DIFFUSE LARGE B-CELL LYMPHOMA
     Route: 065
     Dates: start: 20130130, end: 20130419
  5. PREDNISOLONE [Suspect]
     Indication: DIFFUSE LARGE B-CELL LYMPHOMA
     Dosage: 60-40-0MG
     Route: 065
     Dates: start: 20120130, end: 20130419
  6. DEPOCYTE [Concomitant]
     Indication: DIFFUSE LARGE B-CELL LYMPHOMA
     Route: 037
     Dates: start: 20130222, end: 20130502

REACTIONS (5)
  - Blood bilirubin increased [Fatal]
  - Transaminases increased [Fatal]
  - Hepatitis B surface antigen positive [Unknown]
  - Asthenia [Unknown]
  - Fatigue [Unknown]
